FAERS Safety Report 9660803 (Version 1)
Quarter: 2013Q4

REPORT INFORMATION
  Report Type: Spontaneous
  Country: CA (occurrence: CA)
  Receive Date: 20131031
  Receipt Date: 20131031
  Transmission Date: 20140711
  Serious: Yes (Other)
  Sender: FDA-Public Use
  Company Number: CA-GLAXOSMITHKLINE-A1047008A

PATIENT
  Age: 39 Year
  Sex: Male
  Weight: 83.92 kg

DRUGS (1)
  1. NICODERM CQ CLEAR 14MG [Suspect]
     Indication: SMOKING CESSATION THERAPY
     Dosage: 14MG PER DAY
     Route: 061

REACTIONS (2)
  - Angina pectoris [Unknown]
  - Malaise [Unknown]
